FAERS Safety Report 14075895 (Version 2)
Quarter: 2017Q4

REPORT INFORMATION
  Report Type: Spontaneous
  Country: US (occurrence: US)
  Receive Date: 20171011
  Receipt Date: 20171012
  Transmission Date: 20180321
  Serious: No
  Sender: FDA-Public Use
  Company Number: US-PFIZER INC-2017356891

PATIENT
  Age: 67 Year
  Sex: Female
  Weight: 59 kg

DRUGS (2)
  1. IBRANCE [Suspect]
     Active Substance: PALBOCICLIB
     Indication: BREAST CANCER METASTATIC
     Dosage: 125 MG CYCLIC (ONCE DAILY FOR DAYS 1 THROUGH 21, FOLLOWED BY 7 DAYS OFF THERAPY)
     Route: 048
     Dates: start: 20170815, end: 20170905
  2. IBRANCE [Suspect]
     Active Substance: PALBOCICLIB
     Dosage: 125 MG CYCLIC (ONCE DAILY FOR 21 DAYS, THEN OFF FOR 7 DAYS)
     Route: 048

REACTIONS (1)
  - Sensitivity of teeth [Recovered/Resolved]

NARRATIVE: CASE EVENT DATE: 201709
